FAERS Safety Report 5611050-1 (Version None)
Quarter: 2008Q1

REPORT INFORMATION
  Report Type: 
  Country: None (occurrence: None)
  Receive Date: 20080201
  Receipt Date: 20071203
  Transmission Date: 20080703
  Serious: No
  Sender: FDA-Public Use
  Company Number: CN-ASTRAZENECA-2007AP07679

PATIENT
  Age: 76 Year
  Sex: Female
  Weight: 48 kg

DRUGS (2)
  1. SEROQUEL [Suspect]
     Indication: DEMENTIA
     Route: 048
     Dates: start: 20071023
  2. UNKNOWN DRUG [Concomitant]
     Indication: HEPATIC FUNCTION ABNORMAL

REACTIONS (1)
  - WHITE BLOOD CELL COUNT DECREASED [None]
